FAERS Safety Report 12418469 (Version 1)
Quarter: 2016Q2

REPORT INFORMATION
  Report Type: Spontaneous
  Country: US (occurrence: US)
  Receive Date: 20160531
  Receipt Date: 20160531
  Transmission Date: 20160815
  Serious: No
  Sender: FDA-Public Use
  Company Number: US-JAZZ-JPI-P-002890

PATIENT
  Age: 41 Year
  Sex: Female
  Weight: 56.36 kg

DRUGS (7)
  1. TRIAMCINOLONE ACETONIDE. [Concomitant]
     Active Substance: TRIAMCINOLONE ACETONIDE
     Indication: SEASONAL ALLERGY
  2. XYREM [Suspect]
     Active Substance: SODIUM OXYBATE
     Indication: DYSSOMNIA
     Route: 048
     Dates: start: 200709, end: 200711
  3. XYREM [Suspect]
     Active Substance: SODIUM OXYBATE
     Dosage: BID (4.25GM 1ST DOSE, 3.75GM 2ND DOSE)
     Route: 048
  4. XYREM [Suspect]
     Active Substance: SODIUM OXYBATE
     Route: 048
     Dates: start: 200711
  5. THYROID [Concomitant]
     Active Substance: LEVOTHYROXINE\LIOTHYRONINE
     Indication: PRODUCT USED FOR UNKNOWN INDICATION
  6. XYREM [Suspect]
     Active Substance: SODIUM OXYBATE
     Route: 048
  7. XYREM [Suspect]
     Active Substance: SODIUM OXYBATE
     Route: 048

REACTIONS (10)
  - Vomiting [Not Recovered/Not Resolved]
  - Weight decreased [Recovering/Resolving]
  - Anxiety [Recovering/Resolving]
  - Muscle spasms [Not Recovered/Not Resolved]
  - Thirst [Not Recovered/Not Resolved]
  - Eating disorder [Unknown]
  - Back pain [Recovered/Resolved]
  - Retching [Not Recovered/Not Resolved]
  - Tremor [Recovering/Resolving]
  - Nervousness [Recovering/Resolving]

NARRATIVE: CASE EVENT DATE: 200709
